FAERS Safety Report 12979245 (Version 1)
Quarter: 2016Q4

REPORT INFORMATION
  Report Type: Spontaneous
  Country: DK (occurrence: DK)
  Receive Date: 20161128
  Receipt Date: 20161128
  Transmission Date: 20170207
  Serious: Yes (Other)
  Sender: FDA-Public Use
  Company Number: DK-TEVA-712088ISR

PATIENT
  Age: 33 Year
  Sex: Female

DRUGS (2)
  1. PINEX RETARD ^ACTAVIS^ [Suspect]
     Active Substance: ACETAMINOPHEN
     Route: 065
  2. TRAMADOL RETARD ^ACTAVIS^ [Suspect]
     Active Substance: TRAMADOL
     Route: 065

REACTIONS (4)
  - Dyspnoea [Recovered/Resolved]
  - Stridor [Recovered/Resolved]
  - Angioedema [Unknown]
  - Hypersensitivity [Recovered/Resolved]

NARRATIVE: CASE EVENT DATE: 20161109
